FAERS Safety Report 26105091 (Version 1)
Quarter: 2025Q4

REPORT INFORMATION
  Report Type: Report from Study
  Country: IN (occurrence: IN)
  Receive Date: 20251130
  Receipt Date: 20251130
  Transmission Date: 20260117
  Serious: Yes (Death)
  Sender: ROCHE
  Company Number: IN-ROCHE-10000448483

PATIENT
  Age: 61 Year
  Sex: Female

DRUGS (1)
  1. TECENTRIQ [Suspect]
     Active Substance: ATEZOLIZUMAB
     Indication: Lung neoplasm malignant
     Route: 042
     Dates: start: 20251014, end: 20251014

REACTIONS (1)
  - Death [Fatal]
